FAERS Safety Report 25721318 (Version 2)
Quarter: 2025Q3

REPORT INFORMATION
  Report Type: Spontaneous
  Country: US (occurrence: US)
  Receive Date: 20250825
  Receipt Date: 20250829
  Transmission Date: 20251021
  Serious: No
  Sender: CSL BEHRING
  Company Number: US-BEH-2025216420

PATIENT
  Age: 44 Year
  Sex: Female
  Weight: 45.18 kg

DRUGS (2)
  1. HIZENTRA [Suspect]
     Active Substance: HUMAN IMMUNOGLOBULIN G
     Route: 065
  2. HIZENTRA [Suspect]
     Active Substance: HUMAN IMMUNOGLOBULIN G
     Route: 065

REACTIONS (6)
  - Inadvertent injection air bubble [Unknown]
  - Infusion site erythema [Unknown]
  - Infusion site swelling [Unknown]
  - Anxiety [Unknown]
  - Infusion site haemorrhage [Unknown]
  - Infusion site inflammation [Unknown]
